FAERS Safety Report 9796355 (Version 1)
Quarter: 2014Q1

REPORT INFORMATION
  Report Type: Spontaneous
  Country: GB (occurrence: GB)
  Receive Date: 20140103
  Receipt Date: 20140103
  Transmission Date: 20141002
  Serious: Yes (Other)
  Sender: FDA-Public Use
  Company Number: GB-PFIZER INC-2014000478

PATIENT
  Age: 14 Year
  Sex: Female

DRUGS (1)
  1. SERTRALINE HCL [Suspect]
     Indication: POST-TRAUMATIC STRESS DISORDER
     Dosage: 25 MG, 1X/DAY
     Route: 048
     Dates: start: 20131129, end: 20131219

REACTIONS (4)
  - Suicidal ideation [Recovered/Resolved]
  - Hallucination, visual [Not Recovered/Not Resolved]
  - Emotional distress [Unknown]
  - Off label use [Recovered/Resolved]
